FAERS Safety Report 9202052 (Version 1)
Quarter: 2013Q2

REPORT INFORMATION
  Report Type: Spontaneous
  Country: IN (occurrence: DE)
  Receive Date: 20130401
  Receipt Date: 20130401
  Transmission Date: 20140414
  Serious: Yes (Other)
  Sender: FDA-Public Use
  Company Number: DE-PFIZER INC-2013099224

PATIENT
  Age: 38 Year
  Sex: Female

DRUGS (5)
  1. VENLAFAXINE HYDROCHLORIDE [Suspect]
     Indication: DEPRESSION
     Dosage: 300 MG PER DAY
  2. VENLAFAXINE HYDROCHLORIDE [Interacting]
     Dosage: 375 MG PER DAY
  3. BUPROPION [Interacting]
     Indication: DEPRESSION
     Dosage: 300 MG PER DAY
  4. LITHIUM [Concomitant]
     Indication: DEPRESSION
     Dosage: 450 MG PER DAY
  5. PREGABALIN [Concomitant]
     Indication: DEPRESSION
     Dosage: 300 MG,PER DAY

REACTIONS (3)
  - Drug interaction [Recovered/Resolved]
  - Serotonin syndrome [Recovered/Resolved]
  - Drug effect incomplete [Unknown]
